FAERS Safety Report 13402503 (Version 2)
Quarter: 2017Q2

REPORT INFORMATION
  Report Type: Spontaneous
  Country: BE (occurrence: BE)
  Receive Date: 20170404
  Receipt Date: 20170410
  Transmission Date: 20170830
  Serious: Yes (Life-Threatening, Other)
  Sender: FDA-Public Use
  Company Number: BE-PFIZER INC-2017142430

PATIENT
  Age: 76 Year
  Sex: Female

DRUGS (2)
  1. CEFTRIAXONE SODIUM. [Suspect]
     Active Substance: CEFTRIAXONE SODIUM
     Indication: LYME DISEASE
     Dosage: 4 G, 2X/WEEK (SINGLE DOSE, 20 CONSECUTIVE WEEKS)
     Route: 042
  2. CEFTRIAXONE SODIUM. [Suspect]
     Active Substance: CEFTRIAXONE SODIUM
     Dosage: 4 G, 2X/WEEK (SINGLE DOSE, EIGHT CONSECUTIVE WEEKS)
     Route: 042

REACTIONS (3)
  - Acute kidney injury [Recovered/Resolved]
  - Nephropathy [Unknown]
  - Haemolytic anaemia [Recovering/Resolving]
